FAERS Safety Report 5657511-0 (Version None)
Quarter: 2008Q1

REPORT INFORMATION
  Report Type: 
  Country: None (occurrence: None)
  Receive Date: 20080310
  Receipt Date: 20080228
  Transmission Date: 20080703
  Serious: Yes (Other)
  Sender: FDA-Public Use
  Company Number: IT-GILEAD-2007-0014443

PATIENT
  Age: 41 Year
  Sex: Female

DRUGS (3)
  1. VIREAD [Suspect]
     Indication: HIV INFECTION
  2. LAMIVUDINE [Concomitant]
     Indication: HIV INFECTION
  3. LOPINAVIR AND RITONAVIR [Concomitant]
     Indication: HIV INFECTION

REACTIONS (2)
  - PREGNANCY [None]
  - ULTRASOUND ANTENATAL SCREEN ABNORMAL [None]
